FAERS Safety Report 11538117 (Version 1)
Quarter: 2015Q3

REPORT INFORMATION
  Report Type: Spontaneous
  Country: US (occurrence: US)
  Receive Date: 20150922
  Receipt Date: 20150922
  Transmission Date: 20151125
  Serious: No
  Sender: FDA-Public Use
  Company Number: US-BAYER-2015-426231

PATIENT
  Age: 95 Year
  Sex: Male
  Weight: 61.22 kg

DRUGS (4)
  1. PHILLIPS^ LAXATIVE DIETARY SUPPLEMENT [Suspect]
     Active Substance: MAGNESIUM OXIDE
     Dosage: 2 DF, QD
     Route: 048
     Dates: start: 201508
  2. TYLENOL [Concomitant]
     Active Substance: ACETAMINOPHEN
  3. MIRALAX [Suspect]
     Active Substance: POLYETHYLENE GLYCOL 3350
  4. AMLODIPINE BESYLATE. [Concomitant]
     Active Substance: AMLODIPINE BESYLATE

REACTIONS (2)
  - Flatulence [None]
  - Flatulence [None]

NARRATIVE: CASE EVENT DATE: 201508
